FAERS Safety Report 9849696 (Version 1)
Quarter: 2014Q1

REPORT INFORMATION
  Report Type: Spontaneous
  Country: US (occurrence: US)
  Receive Date: 20140128
  Receipt Date: 20140128
  Transmission Date: 20141002
  Serious: No
  Sender: FDA-Public Use
  Company Number: US-PFIZER INC-2014021245

PATIENT
  Sex: Female

DRUGS (7)
  1. EPLERENONE [Suspect]
     Indication: HYPERALDOSTERONISM
     Dosage: 25 MG, 2X/DAY
  2. LISINOPRIL [Interacting]
     Dosage: UNK
  3. COREG [Interacting]
     Indication: CARDIOMYOPATHY
     Dosage: 25 MG, 2X/DAY
     Dates: start: 2006
  4. DIOVAN [Interacting]
     Indication: CARDIOMYOPATHY
     Dosage: 80 MG, 2X/DAY
     Dates: start: 2006
  5. SOTALOL [Interacting]
     Dosage: UNK
     Dates: start: 2006
  6. CITRACAL [Concomitant]
     Indication: OSTEOPOROSIS
     Dosage: 600 MG, 2X/DAY
  7. KONSYL [Concomitant]
     Indication: GASTROINTESTINAL MOTILITY DISORDER
     Dosage: UNK

REACTIONS (2)
  - Drug interaction [Unknown]
  - Off label use [Unknown]
